FAERS Safety Report 16967874 (Version 1)
Quarter: 2019Q4

REPORT INFORMATION
  Report Type: Other
  Country: SE (occurrence: SE)
  Receive Date: 20191028
  Receipt Date: 20191028
  Transmission Date: 20200122
  Serious: Yes (Life-Threatening, Hospitalization, Other)
  Sender: FDA-Public Use
  Company Number: SE-DENTSPLY-2019SCDP000581

PATIENT
  Age: 2 Month
  Sex: Male

DRUGS (1)
  1. PRILOCAINE AND LIDOCAINE [Suspect]
     Active Substance: LIDOCAINE\PRILOCAINE
     Indication: PRODUCT USED FOR UNKNOWN INDICATION
     Dosage: 25 MG/G LIDOCAINE AND 25 MG/G PRILOCAINE
     Route: 061

REACTIONS (3)
  - Toxicity to various agents [Recovered/Resolved]
  - Overdose [Recovered/Resolved]
  - Methaemoglobinaemia [Recovered/Resolved]
